FAERS Safety Report 15232719 (Version 5)
Quarter: 2018Q4

REPORT INFORMATION
  Report Type: Spontaneous
  Country: CO (occurrence: CO)
  Receive Date: 20180802
  Receipt Date: 20181025
  Transmission Date: 20190204
  Serious: Yes (Disabling, Other)
  Sender: FDA-Public Use
  Company Number: CO-REGENERON PHARMACEUTICALS, INC.-2018-32170

PATIENT

DRUGS (2)
  1. EYLEA [Suspect]
     Active Substance: AFLIBERCEPT
     Indication: DIABETIC RETINAL OEDEMA
     Dosage: 0.1 ML, ONCE
     Route: 031
     Dates: start: 20180517, end: 20180517
  2. EYLEA [Suspect]
     Active Substance: AFLIBERCEPT
     Dosage: 0.1 ML, ONCE
     Route: 031
     Dates: start: 20180712, end: 20180712

REACTIONS (9)
  - Product prescribing issue [Unknown]
  - Blindness [Recovering/Resolving]
  - Product tampering [Unknown]
  - Blood glucose increased [Unknown]
  - Retinal artery thrombosis [Unknown]
  - Vision blurred [Unknown]
  - Blindness [Unknown]
  - Overdose [Unknown]
  - Suspected counterfeit product [Unknown]

NARRATIVE: CASE EVENT DATE: 201807
